FAERS Safety Report 7353575-7 (Version None)
Quarter: 2011Q1

REPORT INFORMATION
  Report Type: 
  Country: None (occurrence: None)
  Receive Date: 20110315
  Receipt Date: 20110308
  Transmission Date: 20110831
  Serious: Yes (Other)
  Sender: FDA-Public Use
  Company Number: US-US-EMD SERONO, INC.-7046753

PATIENT
  Sex: Male

DRUGS (2)
  1. REBIF [Suspect]
     Indication: PRODUCT USED FOR UNKNOWN INDICATION
     Route: 058
     Dates: start: 20101202, end: 20110307
  2. CYMBALTA [Concomitant]
     Indication: DEPRESSION
     Dates: start: 20101001

REACTIONS (3)
  - AGITATION [None]
  - SUICIDAL BEHAVIOUR [None]
  - AGGRESSION [None]
